FAERS Safety Report 5701780-5 (Version None)
Quarter: 2008Q2

REPORT INFORMATION
  Report Type: 
  Country: None (occurrence: None)
  Receive Date: 20080408
  Receipt Date: 20080327
  Transmission Date: 20081010
  Serious: Yes (Death)
  Sender: FDA-Public Use
  Company Number: 2008S1000262

PATIENT
  Age: 61 Year
  Sex: Male

DRUGS (2)
  1. ROXANOL [Suspect]
     Dates: end: 20070824
  2. UNSPECIFIED DRUG [Suspect]
     Dates: end: 20070824

REACTIONS (3)
  - DRUG DIVERSION [None]
  - HOMICIDE [None]
  - OVERDOSE [None]
